FAERS Safety Report 14444549 (Version 4)
Quarter: 2018Q1

REPORT INFORMATION
  Report Type: Report from Study
  Country: AR (occurrence: AR)
  Receive Date: 20180126
  Receipt Date: 20180222
  Transmission Date: 20180509
  Serious: Yes (Hospitalization)
  Sender: FDA-Public Use
  Company Number: AR-GLAXOSMITHKLINE-AR2018009506

PATIENT
  Age: 12 Year
  Sex: Female

DRUGS (6)
  1. PREDNISONE. [Concomitant]
     Active Substance: PREDNISONE
     Dosage: 20 MG, QD
     Route: 048
     Dates: start: 20180121, end: 20180122
  2. SILDENAFIL. [Concomitant]
     Active Substance: SILDENAFIL
     Indication: PNEUMONIA
     Dosage: 12.5 MG, BID
     Route: 048
     Dates: start: 20180119, end: 20180122
  3. PREDNISONE. [Concomitant]
     Active Substance: PREDNISONE
     Indication: PNEUMONIA
     Dosage: 15 MG, QD
     Route: 048
     Dates: start: 20180123
  4. PREDNISONE. [Concomitant]
     Active Substance: PREDNISONE
     Dosage: 15 MG, QD
     Route: 048
     Dates: start: 20180119, end: 20180120
  5. BELIMUMAB [Suspect]
     Active Substance: BELIMUMAB
     Indication: SYSTEMIC LUPUS ERYTHEMATOSUS
     Dosage: 10 MG/KG, CYC, PLACEBO CONTROLLED
     Route: 042
     Dates: start: 20150706, end: 20160711
  6. BELIMUMAB [Suspect]
     Active Substance: BELIMUMAB
     Dosage: 10 MG, CYC
     Route: 042
     Dates: start: 20160808

REACTIONS (1)
  - Atypical pneumonia [Recovered/Resolved with Sequelae]

NARRATIVE: CASE EVENT DATE: 20180117
